FAERS Safety Report 18265456 (Version 1)
Quarter: 2020Q3

REPORT INFORMATION
  Report Type: Other
  Country: US (occurrence: US)
  Receive Date: 20200914
  Receipt Date: 20200914
  Transmission Date: 20201103
  Serious: No
  Sender: FDA-Public Use
  Company Number: US-LEADIANT BIOSCIENCES INC-2020STPI000233

PATIENT
  Sex: Female

DRUGS (2)
  1. MATULANE [Suspect]
     Active Substance: PROCARBAZINE HYDROCHLORIDE
     Indication: NON-HODGKIN^S LYMPHOMA METASTATIC
     Dosage: 150 MG (3 CAPSULES) ON DAYS 1?7 OR A 14 DAY CYCLE, EVERY OTHER CYCLE
     Route: 048
     Dates: start: 20200424
  2. DRONABINOL. [Concomitant]
     Active Substance: DRONABINOL

REACTIONS (3)
  - Agitation [Unknown]
  - Depression [Unknown]
  - Malaise [Unknown]
